FAERS Safety Report 6399828-0 (Version None)
Quarter: 2009Q4

REPORT INFORMATION
  Report Type: 
  Country: None (occurrence: None)
  Receive Date: 20091014
  Receipt Date: 20091002
  Transmission Date: 20100525
  Serious: Yes (Death, Other)
  Sender: FDA-Public Use
  Company Number: CO-WYE-H11485109

PATIENT
  Sex: Male

DRUGS (2)
  1. TYGACIL [Suspect]
     Indication: KLEBSIELLA BACTERAEMIA
     Route: 042
     Dates: start: 20090921, end: 20090901
  2. TYGACIL [Suspect]
     Indication: DEVICE RELATED INFECTION

REACTIONS (10)
  - ACINETOBACTER INFECTION [None]
  - BACTERIAL PERICARDITIS [None]
  - DEATH [None]
  - DEVICE RELATED INFECTION [None]
  - DRUG INEFFECTIVE [None]
  - KLEBSIELLA BACTERAEMIA [None]
  - KLEBSIELLA INFECTION [None]
  - PSEUDOMONAL BACTERAEMIA [None]
  - PSEUDOMONAS INFECTION [None]
  - URINARY TRACT INFECTION BACTERIAL [None]
